FAERS Safety Report 8016077-0 (Version None)
Quarter: 2011Q4

REPORT INFORMATION
  Report Type: 
  Country: None (occurrence: None)
  Receive Date: 20111228
  Receipt Date: 20111228
  Transmission Date: 20120403
  Serious: Yes (Hospitalization)
  Sender: FDA-Public Use
  Company Number: None

PATIENT
  Age: 37 Year
  Sex: Male
  Weight: 79.6 kg

DRUGS (1)
  1. CISPLATIN [Suspect]
     Indication: TONGUE NEOPLASM MALIGNANT STAGE UNSPECIFIED
     Dosage: 200 MG OTHER IV
     Route: 042
     Dates: start: 20110523

REACTIONS (4)
  - FEBRILE NEUTROPENIA [None]
  - RENAL IMPAIRMENT [None]
  - INFECTION [None]
  - LEUKOPENIA [None]
